FAERS Safety Report 5190954-0 (Version None)
Quarter: 2006Q4

REPORT INFORMATION
  Report Type: 
  Country: None (occurrence: None)
  Receive Date: 20061222
  Receipt Date: 20061215
  Transmission Date: 20070319
  Serious: Yes (Other)
  Sender: FDA-Public Use
  Company Number: DE-BOEHRINGER INGELHEIM PHARMACEUTICALS, INC.-2006-DE-06697DE

PATIENT
  Sex: Male

DRUGS (1)
  1. ALNA [Suspect]

REACTIONS (1)
  - ATRIAL FIBRILLATION [None]
